FAERS Safety Report 9701632 (Version 2)
Quarter: 2013Q4

REPORT INFORMATION
  Report Type: Spontaneous
  Country: US (occurrence: US)
  Receive Date: 20131119
  Receipt Date: 20131119
  Transmission Date: 20140711
  Serious: Yes (Other)
  Sender: FDA-Public Use
  Company Number: US-ORACLE-2011S1000061

PATIENT
  Age: 50 Year
  Sex: Male
  Weight: 68.04 kg

DRUGS (17)
  1. KRYSTEXXA INJECTION [Suspect]
     Indication: GOUT
     Route: 042
     Dates: start: 20110712, end: 20110712
  2. KRYSTEXXA INJECTION [Suspect]
     Indication: GOUT
     Route: 042
     Dates: start: 20110726, end: 20110726
  3. KRYSTEXXA INJECTION [Suspect]
     Indication: GOUT
     Route: 042
     Dates: start: 20110809, end: 20110809
  4. SOLU MEDROL [Concomitant]
     Indication: PREMEDICATION
     Route: 042
     Dates: start: 20110712, end: 20110712
  5. SOLU MEDROL [Concomitant]
     Indication: PREMEDICATION
     Route: 042
     Dates: start: 20110726, end: 20110726
  6. SOLU MEDROL [Concomitant]
     Indication: PREMEDICATION
     Route: 042
     Dates: start: 20110809, end: 20110809
  7. BENADRYL /01563701/ [Concomitant]
     Indication: PREMEDICATION
     Route: 048
     Dates: start: 20110712, end: 20110712
  8. BENADRYL /01563701/ [Concomitant]
     Indication: PREMEDICATION
     Route: 048
     Dates: start: 20110726, end: 20110726
  9. BENADRYL /01563701/ [Concomitant]
     Indication: PREMEDICATION
     Route: 048
     Dates: start: 20110809, end: 20110809
  10. TYLENOL /00020001/ [Concomitant]
     Indication: PREMEDICATION
     Route: 048
     Dates: start: 20110712, end: 20110712
  11. TYLENOL /00020001/ [Concomitant]
     Indication: PREMEDICATION
     Route: 048
     Dates: start: 20110726, end: 20110726
  12. TYLENOL /00020001/ [Concomitant]
     Indication: PREMEDICATION
     Route: 048
     Dates: start: 20110809, end: 20110809
  13. DARUNAVIR [Concomitant]
     Indication: PRODUCT USED FOR UNKNOWN INDICATION
  14. MARAVIROC [Concomitant]
     Indication: PRODUCT USED FOR UNKNOWN INDICATION
  15. RETROVIR [Concomitant]
     Indication: PRODUCT USED FOR UNKNOWN INDICATION
  16. EPIVIR [Concomitant]
     Indication: PRODUCT USED FOR UNKNOWN INDICATION
  17. LIPITOR [Concomitant]
     Indication: PRODUCT USED FOR UNKNOWN INDICATION

REACTIONS (3)
  - Infusion related reaction [Recovered/Resolved]
  - Muscle spasms [Recovered/Resolved]
  - Nasal discomfort [Recovered/Resolved]
